FAERS Safety Report 4973527-1 (Version None)
Quarter: 2006Q2

REPORT INFORMATION
  Report Type: 
  Country: None (occurrence: None)
  Receive Date: 20060407
  Receipt Date: 20060328
  Transmission Date: 20061013
  Serious: Yes (Hospitalization)
  Sender: FDA-Public Use
  Company Number: 223501

PATIENT
  Age: 78 Year
  Sex: Female

DRUGS (3)
  1. MABTHERA (RITUXIMAB) CONC FOR SOLUTION FOR INFUSION [Suspect]
     Indication: MANTLE CELL LYMPHOMA
     Dosage: 700 MG/KG
     Dates: start: 20051006, end: 20060220
  2. CYCLOPHOSPHAMIDE [Suspect]
     Indication: MANTLE CELL LYMPHOMA
     Dosage: 500 MG/KG
     Dates: start: 20051006, end: 20060220
  3. FLUDARABINE [Suspect]
     Indication: MANTLE CELL LYMPHOMA
     Dosage: 60 MG/KG
     Dates: start: 20051006, end: 20060220

REACTIONS (3)
  - APLASIA [None]
  - ESCHERICHIA SEPSIS [None]
  - HAEMATURIA [None]
